FAERS Safety Report 25300679 (Version 1)
Quarter: 2025Q2

REPORT INFORMATION
  Report Type: Spontaneous
  Country: US (occurrence: None)
  Receive Date: 20250509
  Receipt Date: 20250509
  Transmission Date: 20250717
  Serious: Yes (Hospitalization)
  Sender: FDA-CTU
  Company Number: None

PATIENT
  Age: 69 Year
  Sex: Female
  Weight: 61.4 kg

DRUGS (2)
  1. ERTAPENEM [Suspect]
     Active Substance: ERTAPENEM
  2. ERTAPENEM [Concomitant]
     Active Substance: ERTAPENEM

REACTIONS (1)
  - Seizure [None]
